FAERS Safety Report 13622709 (Version 1)
Quarter: 2017Q2

REPORT INFORMATION
  Report Type: Other
  Country: GB (occurrence: US)
  Receive Date: 20170607
  Receipt Date: 20170607
  Transmission Date: 20170830
  Serious: Yes (Life-Threatening, Other)
  Sender: FDA-Public Use
  Company Number: US-INTERNATIONAL MEDICATION SYSTEMS, LIMITED-2021659

PATIENT
  Age: 57 Year
  Sex: Female

DRUGS (3)
  1. MORPHINE [Suspect]
     Active Substance: MORPHINE
     Indication: ABDOMINAL TENDERNESS
  2. CEFOXITIN [Suspect]
     Active Substance: CEFOXITIN SODIUM
  3. METRONIDAZOLE. [Suspect]
     Active Substance: METRONIDAZOLE

REACTIONS (3)
  - Anaphylactic reaction [Unknown]
  - Systemic mastocytosis [Unknown]
  - Cardiac arrest [Recovering/Resolving]
